FAERS Safety Report 17739761 (Version 1)
Quarter: 2020Q2

REPORT INFORMATION
  Report Type: Report from Study
  Country: None (occurrence: US)
  Receive Date: 20200504
  Receipt Date: 20200504
  Transmission Date: 20200714
  Serious: Yes (Other)
  Sender: FDA-Public Use
  Company Number: US-ABBVIE-20K-163-3295052-00

PATIENT
  Sex: Female

DRUGS (2)
  1. HUMIRA [Suspect]
     Active Substance: ADALIMUMAB
     Indication: RHEUMATOID ARTHRITIS
     Dosage: CITRATE FREE
     Route: 058
  2. METHOTREXATE. [Concomitant]
     Active Substance: METHOTREXATE
     Indication: PRODUCT USED FOR UNKNOWN INDICATION

REACTIONS (10)
  - Pharyngitis streptococcal [Recovering/Resolving]
  - Surgical failure [Unknown]
  - Lacrimation increased [Unknown]
  - Medical device implantation [Recovering/Resolving]
  - Immunodeficiency [Not Recovered/Not Resolved]
  - Oropharyngeal pain [Recovering/Resolving]
  - Suspected COVID-19 [Recovering/Resolving]
  - Rhinorrhoea [Unknown]
  - Blindness [Not Recovered/Not Resolved]
  - Night sweats [Recovering/Resolving]

NARRATIVE: CASE EVENT DATE: 2020
